FAERS Safety Report 25212991 (Version 7)
Quarter: 2025Q4

REPORT INFORMATION
  Report Type: Spontaneous
  Country: US (occurrence: US)
  Receive Date: 20250418
  Receipt Date: 20251120
  Transmission Date: 20260117
  Serious: Yes (Hospitalization, Other)
  Sender: SANOFI AVENTIS
  Company Number: US-SA-2025SA110515

PATIENT
  Age: 67 Year
  Sex: Female
  Weight: 99.79 kg

DRUGS (17)
  1. DUPIXENT [Suspect]
     Active Substance: DUPILUMAB
     Indication: Chronic obstructive pulmonary disease
     Dosage: 300 MG, QOW
     Route: 058
  2. DUPIXENT [Suspect]
     Active Substance: DUPILUMAB
     Indication: Chronic respiratory failure
  3. DUPIXENT [Suspect]
     Active Substance: DUPILUMAB
     Indication: Hypercapnia
  4. DUPIXENT [Suspect]
     Active Substance: DUPILUMAB
     Indication: Respiratory failure
  5. DUPIXENT [Suspect]
     Active Substance: DUPILUMAB
     Indication: Psoriasis
  6. DUPIXENT [Suspect]
     Active Substance: DUPILUMAB
     Indication: Colitis ulcerative
  7. ENTYVIO [Concomitant]
     Active Substance: VEDOLIZUMAB
  8. ASPIRIN [Concomitant]
     Active Substance: ASPIRIN
  9. OMEPRAZOLE [Concomitant]
     Active Substance: OMEPRAZOLE
  10. GABAPENTIN [Concomitant]
     Active Substance: GABAPENTIN
  11. ELIQUIS [Concomitant]
     Active Substance: APIXABAN
  12. LEVOTHYROXINE SODIUM [Concomitant]
     Active Substance: LEVOTHYROXINE SODIUM
  13. IBANDRONATE SODIUM [Concomitant]
     Active Substance: IBANDRONATE SODIUM
  14. ATORVASTATIN CALCIUM [Concomitant]
     Active Substance: ATORVASTATIN CALCIUM
  15. MONTELUKAST SODIUM [Concomitant]
     Active Substance: MONTELUKAST SODIUM
  16. IRON [Concomitant]
     Active Substance: IRON
  17. LASIX [Concomitant]
     Active Substance: FUROSEMIDE

REACTIONS (8)
  - Pulmonary thrombosis [Unknown]
  - Eczema [Unknown]
  - Ankle fracture [Unknown]
  - Lower limb fracture [Unknown]
  - Lung disorder [Unknown]
  - Gait inability [Unknown]
  - Rash [Unknown]
  - Product use in unapproved indication [Unknown]

NARRATIVE: CASE EVENT DATE: 20250301
